FAERS Safety Report 24812875 (Version 1)
Quarter: 2025Q1

REPORT INFORMATION
  Report Type: Spontaneous
  Country: US (occurrence: US)
  Receive Date: 20250107
  Receipt Date: 20250107
  Transmission Date: 20250408
  Serious: No
  Sender: SUNOVION
  Company Number: US-SMPA-2024SPA006423AA

PATIENT

DRUGS (7)
  1. ORGOVYX [Suspect]
     Active Substance: RELUGOLIX
     Indication: Prostate cancer
     Route: 065
  2. OMEGA 3 [Concomitant]
     Active Substance: CAPSAICIN
     Indication: Blood cholesterol
     Dosage: 1 G, QID
     Route: 065
  3. OMEGA 3 [Concomitant]
     Active Substance: CAPSAICIN
  4. NIACIN [Concomitant]
     Active Substance: NIACIN
     Indication: Blood cholesterol
     Dosage: 500 MG, QID
     Route: 065
  5. MELOXICAM [Concomitant]
     Active Substance: MELOXICAM
     Indication: Arthralgia
     Dosage: 7 MG, QD
     Route: 065
  6. LOPERAMIDE [Concomitant]
     Active Substance: LOPERAMIDE
     Indication: Dyspepsia
     Dosage: 1 MG, QD
     Route: 065
  7. CALCIUM\CHOLECALCIFEROL [Concomitant]
     Active Substance: CALCIUM\CHOLECALCIFEROL
     Dosage: 200 MG, QD
     Route: 065

REACTIONS (1)
  - Hot flush [Unknown]
